FAERS Safety Report 17186556 (Version 1)
Quarter: 2019Q4

REPORT INFORMATION
  Report Type: Spontaneous
  Country: US (occurrence: US)
  Receive Date: 20191220
  Receipt Date: 20191220
  Transmission Date: 20200122
  Serious: Yes (Hospitalization, Other)
  Sender: FDA-Public Use
  Company Number: US-ASSERTIO THERAPEUTICS, INC.-US-2019DEP001315

PATIENT
  Age: 37 Year
  Sex: Female

DRUGS (1)
  1. GRALISE [Suspect]
     Active Substance: GABAPENTIN
     Indication: PANCREATITIS CHRONIC
     Dosage: 2-3 TABLETS ONCE A DAY WITH EVENING MEAL
     Route: 048

REACTIONS (5)
  - Drug titration error [Unknown]
  - Rib fracture [Unknown]
  - Product use in unapproved indication [Unknown]
  - Fall [Unknown]
  - Blood glucose increased [Unknown]

NARRATIVE: CASE EVENT DATE: 20191120
